FAERS Safety Report 23969643 (Version 3)
Quarter: 2024Q3

REPORT INFORMATION
  Report Type: Report from Study
  Country: US (occurrence: US)
  Receive Date: 20240613
  Receipt Date: 20240725
  Transmission Date: 20241017
  Serious: Yes (Hospitalization, Other)
  Sender: ABBVIE
  Company Number: US-ABBVIE-5795290

PATIENT
  Sex: Female
  Weight: 106.14 kg

DRUGS (3)
  1. RINVOQ [Suspect]
     Active Substance: UPADACITINIB
     Indication: Rheumatoid arthritis
     Dosage: STRENGTH :15 MG
     Route: 048
     Dates: start: 20240128, end: 20240522
  2. HYDROXYCHLOROQUINE [Concomitant]
     Active Substance: HYDROXYCHLOROQUINE
     Indication: Sjogren^s syndrome
  3. PREDNISONE [Concomitant]
     Active Substance: PREDNISONE
     Indication: Pharyngitis

REACTIONS (3)
  - Pancreatitis acute [Unknown]
  - Cholecystitis [Unknown]
  - Streptococcal infection [Unknown]

NARRATIVE: CASE EVENT DATE: 20240101
